FAERS Safety Report 16344951 (Version 1)
Quarter: 2019Q2

REPORT INFORMATION
  Report Type: Spontaneous
  Country: US (occurrence: US)
  Receive Date: 20190522
  Receipt Date: 20190522
  Transmission Date: 20190711
  Serious: No
  Sender: FDA-Public Use
  Company Number: US-JNJFOC-20190505722

PATIENT
  Age: 52 Year
  Sex: Female
  Weight: 52.16 kg

DRUGS (1)
  1. VISINE A [Suspect]
     Active Substance: NAPHAZOLINE HYDROCHLORIDE\PHENIRAMINE MALEATE
     Indication: EYE PRURITUS
     Dosage: 1 DROP EACH USE AS NEEDED
     Route: 047
     Dates: start: 20190424

REACTIONS (1)
  - Eye allergy [Not Recovered/Not Resolved]

NARRATIVE: CASE EVENT DATE: 20190502
